FAERS Safety Report 7387523-0 (Version None)
Quarter: 2011Q1

REPORT INFORMATION
  Report Type: 
  Country: None (occurrence: None)
  Receive Date: 20110331
  Receipt Date: 20110328
  Transmission Date: 20110831
  Serious: Yes (Other)
  Sender: FDA-Public Use
  Company Number: DE-PFIZER INC-2011067991

PATIENT
  Sex: Male

DRUGS (3)
  1. TELFAST [Suspect]
  2. DICLOFENAC [Suspect]
  3. IBUPROFEN [Suspect]
     Indication: GOUT
     Dosage: 600 MG, UNK
     Dates: start: 20010101

REACTIONS (3)
  - ARTHRALGIA [None]
  - LIVER DISORDER [None]
  - SPLEEN DISORDER [None]
